FAERS Safety Report 8819552 (Version 1)
Quarter: 2012Q4

REPORT INFORMATION
  Report Type: 
  Country: GB (occurrence: GB)
  Receive Date: 20120930
  Receipt Date: 20120930
  Transmission Date: 20130627
  Serious: Yes (Disabling)
  Sender: FDA-Public Use
  Company Number: GB-MYLANLABS-2012S1019288

PATIENT
  Age: 42 Year

DRUGS (1)
  1. TAMOXIFEN [Suspect]
     Indication: PRODUCT USED FOR UNKNOWN INDICATION
     Route: 048
     Dates: start: 20120501

REACTIONS (1)
  - Macular degeneration [Unknown]
